FAERS Safety Report 9303451 (Version 1)
Quarter: 2013Q2

REPORT INFORMATION
  Report Type: Spontaneous
  Country: US (occurrence: None)
  Receive Date: 20130521
  Receipt Date: 20130521
  Transmission Date: 20140414
  Serious: Yes (Other)
  Sender: FDA-Public Use
  Company Number: None

PATIENT
  Sex: Male
  Weight: 74 kg

DRUGS (1)
  1. MIRABEGRON [Suspect]
     Dates: start: 20130415, end: 20130503

REACTIONS (1)
  - International normalised ratio decreased [None]
